FAERS Safety Report 5802360-3 (Version None)
Quarter: 2008Q3

REPORT INFORMATION
  Report Type: 
  Country: None (occurrence: None)
  Receive Date: 20080702
  Receipt Date: 20080627
  Transmission Date: 20090109
  Serious: Yes (Hospitalization, Other)
  Sender: FDA-Public Use
  Company Number: JHP200800170

PATIENT
  Age: 29 Year
  Sex: Male

DRUGS (10)
  1. EPINEPHRINE [Suspect]
     Indication: VASOPRESSIVE THERAPY
     Dosage: 50 UG, 2 ML INFILTRATION OF 1:200,000 PLUS 1 MG AMPULE, OTHER
     Route: 050
  2. ATROPINE [Concomitant]
  3. MIDAZOLAM HCL [Concomitant]
  4. FENTANYL [Concomitant]
  5. VECURONIUM (VECURONIUM) [Concomitant]
  6. PROPOFOL [Concomitant]
  7. OXYGEN (OXYGEN) [Concomitant]
  8. SEVOFLURANE [Concomitant]
  9. LIDOCAINE [Concomitant]
  10. METAMIZOLE (METAMIZOLE) [Concomitant]

REACTIONS (4)
  - HYPERTENSION [None]
  - MYDRIASIS [None]
  - TACHYCARDIA [None]
  - VISION BLURRED [None]
